FAERS Safety Report 24362570 (Version 1)
Quarter: 2024Q3

REPORT INFORMATION
  Report Type: Report from Study
  Country: BG (occurrence: BG)
  Receive Date: 20240925
  Receipt Date: 20240925
  Transmission Date: 20241016
  Serious: Yes (Hospitalization)
  Sender: ABBVIE
  Company Number: BG-ABBVIE-5933470

PATIENT
  Sex: Male

DRUGS (1)
  1. RINVOQ [Suspect]
     Active Substance: UPADACITINIB
     Indication: Ankylosing spondylitis
     Route: 048
     Dates: start: 202307

REACTIONS (1)
  - Erysipelas [Unknown]
